FAERS Safety Report 8302274-3 (Version None)
Quarter: 2012Q2

REPORT INFORMATION
  Report Type: 
  Country: None (occurrence: None)
  Receive Date: 20120420
  Receipt Date: 20120410
  Transmission Date: 20120825
  Serious: Yes (Hospitalization)
  Sender: FDA-Public Use
  Company Number: US-JNJFOC-20120401272

PATIENT
  Sex: Male
  Weight: 35.9 kg

DRUGS (6)
  1. INFLIXIMAB, RECOMBINANT [Suspect]
     Route: 042
     Dates: start: 20100120
  2. METHOTREXATE [Concomitant]
  3. PREDNISONE TAB [Concomitant]
  4. INFLIXIMAB, RECOMBINANT [Suspect]
     Indication: INFLAMMATORY BOWEL DISEASE
     Route: 042
     Dates: start: 20110909
  5. ADALIMUMAB [Concomitant]
     Dates: start: 20111005
  6. PROBIOTICS [Concomitant]

REACTIONS (2)
  - ILEAL STENOSIS [None]
  - CROHN'S DISEASE [None]
